FAERS Safety Report 5220932-4 (Version None)
Quarter: 2007Q1

REPORT INFORMATION
  Report Type: 
  Country: None (occurrence: None)
  Receive Date: 20070125
  Receipt Date: 20070125
  Transmission Date: 20070707
  Serious: Yes (Disabling)
  Sender: FDA-Public Use
  Company Number: None

PATIENT
  Age: 60 Year
  Sex: Male
  Weight: 104.3273 kg

DRUGS (1)
  1. ZYMAR [Suspect]
     Indication: CATARACT OPERATION
     Dosage: ONE DROP FOUR TIMES DAILY INTRACORNEA
     Route: 021
     Dates: start: 20060111, end: 20060118

REACTIONS (3)
  - CONDITION AGGRAVATED [None]
  - DIPLOPIA [None]
  - EYELID PTOSIS [None]
